FAERS Safety Report 5986857-1 (Version None)
Quarter: 2008Q4

REPORT INFORMATION
  Report Type: 
  Country: None (occurrence: None)
  Receive Date: 20081209
  Receipt Date: 20081114
  Transmission Date: 20090506
  Serious: No
  Sender: FDA-Public Use
  Company Number: US-BAYER-200814424BCC

PATIENT
  Sex: Female

DRUGS (4)
  1. ALEVE (CAPLET) [Suspect]
     Indication: ARTHRALGIA
  2. VITAMINS [Concomitant]
  3. HORMONE REPLACEMENT THERAPY [Concomitant]
  4. ACE INHIBITOR [Concomitant]

REACTIONS (2)
  - IRRITABILITY [None]
  - MOOD ALTERED [None]
